FAERS Safety Report 10005509 (Version 4)
Quarter: 2015Q4

REPORT INFORMATION
  Report Type: Spontaneous
  Country: NO (occurrence: NO)
  Receive Date: 20140313
  Receipt Date: 20151111
  Transmission Date: 20160304
  Serious: Yes (Hospitalization, Other)
  Sender: FDA-Public Use
  Company Number: NO-BIOGENIDEC-2014BI022446

PATIENT
  Age: 52 Year
  Sex: Female

DRUGS (3)
  1. TYSABRI [Suspect]
     Active Substance: NATALIZUMAB
     Indication: MULTIPLE SCLEROSIS
     Route: 042
     Dates: start: 20091203, end: 20110411
  2. AUBAGIO [Concomitant]
     Active Substance: TERIFLUNOMIDE
     Dates: start: 20130822, end: 20140203
  3. GILENYA [Concomitant]
     Active Substance: FINGOLIMOD HYDROCHLORIDE
     Dates: start: 20110726, end: 20130709

REACTIONS (1)
  - Oligodendroglioma [Unknown]

NARRATIVE: CASE EVENT DATE: 20140203
